FAERS Safety Report 5140457-4 (Version None)
Quarter: 2006Q4

REPORT INFORMATION
  Report Type: 
  Country: None (occurrence: None)
  Receive Date: 20061024
  Receipt Date: 20061009
  Transmission Date: 20070319
  Serious: Yes (Death)
  Sender: FDA-Public Use
  Company Number: FR200608002223

PATIENT
  Age: 33 Year
  Sex: Female
  Weight: 77 kg

DRUGS (8)
  1. ZYPREXA [Suspect]
     Indication: COTARD'S SYNDROME
     Dosage: ORAL
     Route: 048
     Dates: start: 20060401, end: 20060601
  2. CLOZAPINE [Concomitant]
  3. TERCIAN (CYAMEMAZINE) [Concomitant]
  4. LORAZEPAM [Concomitant]
  5. SEROPRAM /SCH/ (CITALOPRAM HYDROBROMIDE) [Concomitant]
  6. IMOVANE (ZOPICLONE) [Concomitant]
  7. LEVONORGESTREL AND ETHINYL ESTRADIOL [Concomitant]
  8. GAVISCON [Concomitant]

REACTIONS (4)
  - COMPLETED SUICIDE [None]
  - DRUG INEFFECTIVE [None]
  - INTENTIONAL OVERDOSE [None]
  - TREATMENT NONCOMPLIANCE [None]
